FAERS Safety Report 16912590 (Version 2)
Quarter: 2020Q4

REPORT INFORMATION
  Report Type: Report from Study
  Country: US (occurrence: US)
  Receive Date: 20191014
  Receipt Date: 20201005
  Transmission Date: 20210113
  Serious: Yes (Hospitalization, Other)
  Sender: FDA-Public Use
  Company Number: US-GLAXOSMITHKLINE-2019-TSO02797-US

PATIENT
  Age: 66 Year
  Sex: Female
  Weight: 69.44 kg

DRUGS (6)
  1. ZOFRAN [Concomitant]
     Active Substance: ONDANSETRON HYDROCHLORIDE
     Indication: NAUSEA
     Dosage: 4 MG, Z-PRN
     Route: 042
     Dates: start: 20190725, end: 20190726
  2. NIRAPARIB [Suspect]
     Active Substance: NIRAPARIB
     Indication: NEOPLASM
     Dosage: 300 MG
     Route: 048
     Dates: start: 20190415, end: 20190630
  3. ELECTROLYTE [Concomitant]
     Active Substance: UNSPECIFIED INGREDIENT
     Indication: ACUTE KIDNEY INJURY
     Dosage: 125 MG, Z-Q1HOUR
     Route: 042
     Dates: start: 20190725, end: 20190726
  4. ELECTROLYTE [Concomitant]
     Active Substance: UNSPECIFIED INGREDIENT
     Dosage: 1000 ML, SINGLE
     Route: 042
     Dates: start: 20190725, end: 20190725
  5. HEPARIN [Concomitant]
     Active Substance: HEPARIN SODIUM
     Indication: PROPHYLAXIS
     Dosage: 5000 DF, TID
     Route: 058
     Dates: start: 20190725, end: 20190731
  6. HEPARIN [Concomitant]
     Active Substance: HEPARIN SODIUM
     Indication: EMBOLISM

REACTIONS (1)
  - Acute hepatic failure [Recovered/Resolved]

NARRATIVE: CASE EVENT DATE: 20190726
